FAERS Safety Report 15720758 (Version 2)
Quarter: 2019Q1

REPORT INFORMATION
  Report Type: Spontaneous
  Country: US (occurrence: US)
  Receive Date: 20181213
  Receipt Date: 20190104
  Transmission Date: 20190417
  Serious: No
  Sender: FDA-Public Use
  Company Number: PHEH2018US051293

PATIENT
  Sex: Female

DRUGS (1)
  1. ESTRADIOL. [Suspect]
     Active Substance: ESTRADIOL
     Indication: PRODUCT USED FOR UNKNOWN INDICATION
     Dosage: 0.037 MG, QD
     Route: 062

REACTIONS (5)
  - Breast disorder [Unknown]
  - Headache [Unknown]
  - Blood oestrogen decreased [Unknown]
  - Manufacturing issue [Unknown]
  - Product adhesion issue [Unknown]
